FAERS Safety Report 15542018 (Version 3)
Quarter: 2018Q4

REPORT INFORMATION
  Report Type: Spontaneous
  Country: JP (occurrence: JP)
  Receive Date: 20181023
  Receipt Date: 20181129
  Transmission Date: 20190205
  Serious: Yes (Death)
  Sender: FDA-Public Use
  Company Number: JP-BRACCO-2018JP05364

PATIENT
  Age: 81 Year
  Sex: Female

DRUGS (5)
  1. TEPRENONE [Concomitant]
     Active Substance: TEPRENONE
     Indication: GASTRIC DISORDER
     Dosage: DAILY DOSE 100 MG
     Route: 048
  2. IOPAMIRON [Suspect]
     Active Substance: IOPAMIDOL
     Indication: COMPUTERISED TOMOGRAM
     Dosage: 100 ML, SINGLE
     Route: 040
     Dates: start: 20181009, end: 20181009
  3. DEZOLAM [Concomitant]
     Active Substance: ETIZOLAM
     Indication: INSOMNIA
     Dosage: DAILY DOSE .5 MG
     Route: 048
  4. NICO [Concomitant]
     Indication: ARTERIOSCLEROSIS
     Dosage: DAILY DOSE 400 MG
     Route: 048
  5. NICO [TOCOPHERYL NICOTINATE] [Concomitant]
     Indication: ARTERIOSCLEROSIS
     Dosage: DAILY DOSE 400 MG
     Route: 048

REACTIONS (1)
  - Anaphylactic shock [Fatal]

NARRATIVE: CASE EVENT DATE: 20181009
